FAERS Safety Report 6224406-3 (Version None)
Quarter: 2009Q2

REPORT INFORMATION
  Report Type: 
  Country: None (occurrence: None)
  Receive Date: 20090612
  Receipt Date: 20090319
  Transmission Date: 20091009
  Serious: No
  Sender: FDA-Public Use
  Company Number: US-ABBOTT-09P-163-0563352-00

PATIENT
  Sex: Female
  Weight: 99.426 kg

DRUGS (4)
  1. HUMIRA [Suspect]
     Indication: RHEUMATOID ARTHRITIS
     Route: 058
     Dates: start: 20081001, end: 20081201
  2. HUMIRA [Suspect]
     Dates: start: 20090101
  3. METHOTREXATE [Concomitant]
     Indication: RHEUMATOID ARTHRITIS
  4. FOLIC ACID [Concomitant]
     Indication: RHEUMATOID ARTHRITIS

REACTIONS (3)
  - INJECTION SITE IRRITATION [None]
  - INJECTION SITE PAIN [None]
  - RHEUMATOID ARTHRITIS [None]
